FAERS Safety Report 7786296-7 (Version None)
Quarter: 2011Q3

REPORT INFORMATION
  Report Type: 
  Country: None (occurrence: None)
  Receive Date: 20110929
  Receipt Date: 20110919
  Transmission Date: 20111222
  Serious: Yes (Hospitalization, Other)
  Sender: FDA-Public Use
  Company Number: PHEH2011US05042

PATIENT
  Sex: Female
  Weight: 59 kg

DRUGS (6)
  1. OS-CAL [Concomitant]
     Dosage: 500 MG, TID
  2. EXJADE [Suspect]
     Indication: IRON OVERLOAD
     Dosage: 250 MG, TID
     Route: 048
  3. ZOLOFT [Concomitant]
     Indication: DEPRESSION
     Dosage: 100 MG, DAILY
     Route: 048
  4. AMBIEN [Concomitant]
     Indication: INSOMNIA
     Dosage: 10 MG, QHS
  5. VALSARTAN [Concomitant]
     Indication: HYPERTENSION
     Dosage: 40 MG, DAILY
     Route: 048
  6. ATENOLOL [Concomitant]
     Indication: HYPERTENSION
     Dosage: 50 MG, BID
     Route: 048

REACTIONS (13)
  - KLEBSIELLA INFECTION [None]
  - ASTHENIA [None]
  - PAIN [None]
  - CARDIOMEGALY [None]
  - BLOOD LACTATE DEHYDROGENASE INCREASED [None]
  - PULMONARY FIBROSIS [None]
  - BLOOD PRESSURE SYSTOLIC INCREASED [None]
  - PULMONARY HYPERTENSION [None]
  - PERICARDIAL EFFUSION [None]
  - SICKLE CELL ANAEMIA WITH CRISIS [None]
  - HAEMOGLOBIN DECREASED [None]
  - RETICULOCYTE COUNT ABNORMAL [None]
  - DIASTOLIC DYSFUNCTION [None]
